FAERS Safety Report 20353222 (Version 1)
Quarter: 2022Q1

REPORT INFORMATION
  Report Type: Spontaneous
  Country: FR (occurrence: FR)
  Receive Date: 20220119
  Receipt Date: 20220119
  Transmission Date: 20220423
  Serious: Yes (Life-Threatening, Other)
  Sender: FDA-Public Use
  Company Number: None

PATIENT
  Age: 17 Year
  Sex: Male

DRUGS (5)
  1. LYRICA [Suspect]
     Active Substance: PREGABALIN
     Dosage: AROUND 6 TABLETS A DAY
     Route: 048
  2. LYRICA [Suspect]
     Active Substance: PREGABALIN
     Dosage: 2100 MG, SINGLE
     Route: 048
     Dates: start: 20211121, end: 20211121
  3. COCAINE [Suspect]
     Active Substance: COCAINE
     Dosage: UNK
     Route: 065
     Dates: start: 20211121, end: 20211121
  4. RIVOTRIL [Suspect]
     Active Substance: CLONAZEPAM
     Dosage: 1 TO 2 TABLETS PER INTAKE 1 TO 2 TIMES A WEEK
     Route: 048
  5. RIVOTRIL [Suspect]
     Active Substance: CLONAZEPAM
     Dosage: 14 MG, SINGLE
     Route: 048
     Dates: start: 20211121, end: 20211121

REACTIONS (3)
  - Coma [Recovered/Resolved]
  - Altered state of consciousness [Recovered/Resolved]
  - Drug abuser [Not Recovered/Not Resolved]

NARRATIVE: CASE EVENT DATE: 20211121
